FAERS Safety Report 19011346 (Version 1)
Quarter: 2021Q1

REPORT INFORMATION
  Report Type: Spontaneous
  Country: CN (occurrence: CN)
  Receive Date: 20210316
  Receipt Date: 20210316
  Transmission Date: 20210420
  Serious: Yes (Other)
  Sender: FDA-Public Use
  Company Number: CN-BAXTER-2021BAX004768

PATIENT
  Age: 49 Year
  Sex: Female
  Weight: 69 kg

DRUGS (13)
  1. ENDOXAN [Suspect]
     Active Substance: CYCLOPHOSPHAMIDE
     Dosage: DOSE REINTRODUCED; ENDOXAN + NS
     Route: 042
  2. 0.9% SODIUM CHLORIDE INJECTION [Suspect]
     Active Substance: SODIUM CHLORIDE
     Indication: MEDICATION DILUTION
     Dosage: FIRST CHEMOTHERAPY; ENDOXAN + NS
     Route: 042
  3. 0.9% SODIUM CHLORIDE INJECTION [Suspect]
     Active Substance: SODIUM CHLORIDE
     Dosage: DOSE REINTRODUCED; ENDOXAN + NS
     Route: 042
  4. 0.9% SODIUM CHLORIDE INJECTION [Suspect]
     Active Substance: SODIUM CHLORIDE
     Dosage: DOSE REINTRODUCED; DOPAFEL + NS
     Route: 041
  5. JINYOULI [Concomitant]
     Active Substance: ANF-RHO
     Indication: PRODUCT USED FOR UNKNOWN INDICATION
     Dosage: ON THE SECOND DAY OF CHEMOTHERAPY
     Route: 058
     Dates: start: 20210113
  6. 0.9% SODIUM CHLORIDE INJECTION [Suspect]
     Active Substance: SODIUM CHLORIDE
     Dosage: FIRST CHEMOTHERAPY; DOPAFEL + NS
     Route: 041
  7. ENDOXAN [Suspect]
     Active Substance: CYCLOPHOSPHAMIDE
     Indication: BREAST CANCER FEMALE
     Dosage: FIRST CHEMOTHERAPY; ENDOXAN + NS
     Route: 042
  8. ENDOXAN [Suspect]
     Active Substance: CYCLOPHOSPHAMIDE
     Dosage: SECOND CHEMOTHERAPY; ENDOXAN 900 MG + NS 45ML
     Route: 042
     Dates: start: 20210112, end: 20210112
  9. 0.9% SODIUM CHLORIDE INJECTION [Suspect]
     Active Substance: SODIUM CHLORIDE
     Dosage: SECOND CHEMOTHERAPY; ENDOXAN 900 MG+ NS 45ML
     Route: 042
     Dates: start: 20210112, end: 20210112
  10. 0.9% SODIUM CHLORIDE INJECTION [Suspect]
     Active Substance: SODIUM CHLORIDE
     Dosage: SECOND CHEMOTHERAPY; DOPAFEL 121 MG + NS 250ML
     Route: 041
     Dates: start: 20210112, end: 20210112
  11. DOPAFEL [DOCETAXEL] [Suspect]
     Active Substance: DOCETAXEL
     Dosage: DOSE REINTRODUCED; DOPAFEL + NS
     Route: 041
  12. DOPAFEL [DOCETAXEL] [Suspect]
     Active Substance: DOCETAXEL
     Dosage: SECOND CHEMOTHERAPY; DOPAFEL 121 MG + NS 250ML
     Route: 041
     Dates: start: 20210112, end: 20210112
  13. DOPAFEL [DOCETAXEL] [Suspect]
     Active Substance: DOCETAXEL
     Indication: BREAST CANCER FEMALE
     Dosage: FIRST CHEMOTHERAPY; DOPAFEL + NS
     Route: 041

REACTIONS (2)
  - Agranulocytosis [Recovered/Resolved]
  - White blood cell count decreased [Recovered/Resolved]

NARRATIVE: CASE EVENT DATE: 20210126
